FAERS Safety Report 6928066-5 (Version None)
Quarter: 2010Q3

REPORT INFORMATION
  Report Type: 
  Country: None (occurrence: None)
  Receive Date: 20100812
  Receipt Date: 20100730
  Transmission Date: 20110219
  Serious: Yes (Hospitalization)
  Sender: FDA-Public Use
  Company Number: A-US2010-36853

PATIENT
  Age: 71 Year
  Sex: Female
  Weight: 79.4 kg

DRUGS (5)
  1. TRACLEER [Suspect]
     Indication: PULMONARY ARTERIAL HYPERTENSION
     Dosage: 125 MG, BID,  ORAL
     Route: 048
     Dates: start: 20090101
  2. VIAGRA [Concomitant]
  3. CALCIUM CHANNEL BLOCKERS [Concomitant]
  4. ASPIRIN [Concomitant]
  5. COUMADIN [Concomitant]

REACTIONS (1)
  - TRANSIENT ISCHAEMIC ATTACK [None]
